FAERS Safety Report 6724127-4 (Version None)
Quarter: 2010Q2

REPORT INFORMATION
  Report Type: 
  Country: None (occurrence: None)
  Receive Date: 20100513
  Receipt Date: 20100430
  Transmission Date: 20101027
  Serious: Yes (Hospitalization, Other)
  Sender: FDA-Public Use
  Company Number: BR-ROCHE-702281

PATIENT
  Age: 57 Year
  Sex: Female

DRUGS (3)
  1. TRASTUZUMAB [Suspect]
     Route: 065
  2. TRASTUZUMAB [Suspect]
     Route: 065
  3. VINORELBINE [Concomitant]

REACTIONS (9)
  - BLOOD CREATININE INCREASED [None]
  - BLOOD POTASSIUM DECREASED [None]
  - ELECTROLYTE IMBALANCE [None]
  - FATIGUE [None]
  - MALAISE [None]
  - NAUSEA [None]
  - RENAL FAILURE ACUTE [None]
  - TUMOUR LYSIS SYNDROME [None]
  - VOMITING [None]
